FAERS Safety Report 5579371-9 (Version None)
Quarter: 2008Q1

REPORT INFORMATION
  Report Type: 
  Country: None (occurrence: None)
  Receive Date: 20080102
  Receipt Date: 20071218
  Transmission Date: 20080703
  Serious: Yes (Hospitalization)
  Sender: FDA-Public Use
  Company Number: MX-ELI_LILLY_AND_COMPANY-MX200708000593

PATIENT
  Age: 32 Year
  Sex: Female

DRUGS (4)
  1. PROZAC [Suspect]
     Dosage: 20 MG, UNK
  2. ZYPREXA [Suspect]
     Dosage: 5 MG, UNK
  3. ZYPREXA [Suspect]
     Dosage: 10 MG, UNK
  4. ZYPREXA [Suspect]
     Dosage: 5 MG, UNK

REACTIONS (5)
  - ANAEMIA [None]
  - DRUG EXPOSURE DURING PREGNANCY [None]
  - NAUSEA [None]
  - UTERINE HYPERTONUS [None]
  - VOMITING [None]
